FAERS Safety Report 14301386 (Version 3)
Quarter: 2018Q3

REPORT INFORMATION
  Report Type: Spontaneous
  Country: US (occurrence: US)
  Receive Date: 20171219
  Receipt Date: 20180831
  Transmission Date: 20181010
  Serious: Yes (Other)
  Sender: FDA-Public Use
  Company Number: US-LPDUSPRD-20171720

PATIENT
  Age: 56 Year
  Sex: Male
  Weight: 69.5 kg

DRUGS (3)
  1. VENOFER [Suspect]
     Active Substance: IRON SUCROSE
     Dosage: 100 MG
     Route: 042
     Dates: start: 20160709
  2. MIRCERA [Suspect]
     Active Substance: METHOXY POLYETHYLENE GLYCOL-EPOETIN BETA
     Dosage: 75 MCG
     Route: 040
     Dates: start: 20160809, end: 20160906
  3. PHENYTOIN. [Concomitant]
     Active Substance: PHENYTOIN
     Dosage: UNKNOWN
     Route: 065

REACTIONS (1)
  - Aplasia pure red cell [Unknown]
